FAERS Safety Report 7392917-3 (Version None)
Quarter: 2011Q1

REPORT INFORMATION
  Report Type: 
  Country: None (occurrence: None)
  Receive Date: 20110330
  Receipt Date: 20110330
  Transmission Date: 20110831
  Serious: Yes (Hospitalization)
  Sender: FDA-Public Use
  Company Number: None

PATIENT
  Age: 35 Year
  Sex: Male
  Weight: 94.2 kg

DRUGS (16)
  1. PROCHLORPERAZINE TAB [Concomitant]
  2. TESTOSTERONE PATCH [Concomitant]
  3. GEMCITABINE [Suspect]
     Indication: NON-SMALL CELL LUNG CANCER
     Dosage: 900MG/M2,IV DAYS1+8 Q3W
     Route: 042
     Dates: start: 20110311, end: 20110318
  4. DEXAMETHASONE [Concomitant]
  5. COLCHICINE [Concomitant]
  6. METOPROLOL TARTRATE [Concomitant]
  7. BEVACIZUMAB [Suspect]
     Indication: NON-SMALL CELL LUNG CANCER
     Dosage: 15MG/KG,IV DAY 1 Q3W
     Route: 042
     Dates: start: 20110311
  8. DIFLUCAN [Concomitant]
  9. LOMOTIL [Concomitant]
  10. DOCETAXEL [Suspect]
     Indication: NON-SMALL CELL LUNG CANCER
     Dosage: 75MG/M2,IV DAY 1 Q3W
     Route: 042
     Dates: start: 20110311
  11. FAMOTIDINE [Concomitant]
  12. FILGRASTIM [Concomitant]
  13. LISINOPRIL [Concomitant]
  14. AUGMENTIN [Concomitant]
  15. CLONAZEPAM [Concomitant]
  16. CITALOPRAM HYDROBROMIDE [Concomitant]

REACTIONS (4)
  - LUNG INFECTION [None]
  - PNEUMONIA [None]
  - ATELECTASIS [None]
  - BULLOUS LUNG DISEASE [None]
